FAERS Safety Report 23344803 (Version 1)
Quarter: 2023Q4

REPORT INFORMATION
  Report Type: Other
  Country: US (occurrence: None)
  Receive Date: 20231228
  Receipt Date: 20231228
  Transmission Date: 20240110
  Serious: Yes (Death, Other)
  Sender: FDA-Public Use
  Company Number: US-ROCHE-3481402

PATIENT

DRUGS (2)
  1. RITUXIMAB [Suspect]
     Active Substance: RITUXIMAB
     Indication: Anti-neutrophil cytoplasmic antibody positive vasculitis
     Route: 041
  2. CYCLOPHOSPHAMIDE [Suspect]
     Active Substance: CYCLOPHOSPHAMIDE
     Indication: Anti-neutrophil cytoplasmic antibody positive vasculitis
     Route: 065

REACTIONS (11)
  - COVID-19 [Fatal]
  - Neoplasm malignant [Unknown]
  - Bronchitis [Unknown]
  - Pneumonia [Unknown]
  - Genitourinary tract infection [Unknown]
  - Gastrointestinal infection [Unknown]
  - Skin infection [Unknown]
  - Soft tissue infection [Unknown]
  - Embolism [Unknown]
  - Cardiac disorder [Unknown]
  - Neutropenia [Unknown]
